FAERS Safety Report 20195983 (Version 1)
Quarter: 2021Q4

REPORT INFORMATION
  Report Type: Other
  Country: US (occurrence: None)
  Receive Date: 20211216
  Receipt Date: 20211216
  Transmission Date: 20220303
  Serious: Yes (Life-Threatening, Hospitalization)
  Sender: FDA-Public Use
  Company Number: US-ROCHE-2974900

PATIENT
  Sex: Female
  Weight: 52.210 kg

DRUGS (1)
  1. TECENTRIQ [Suspect]
     Active Substance: ATEZOLIZUMAB
     Indication: Non-small cell lung cancer
     Route: 042
     Dates: start: 202109

REACTIONS (10)
  - Immune system disorder [Not Recovered/Not Resolved]
  - Seizure [Unknown]
  - Encephalitis [Not Recovered/Not Resolved]
  - Amnesia [Unknown]
  - Diarrhoea [Unknown]
  - Constipation [Unknown]
  - Colitis [Unknown]
  - Pneumonitis [Unknown]
  - Ill-defined disorder [Unknown]
  - Life support [Not Recovered/Not Resolved]
